FAERS Safety Report 7730090-X (Version None)
Quarter: 2011Q3

REPORT INFORMATION
  Report Type: 
  Country: None (occurrence: None)
  Receive Date: 20110906
  Receipt Date: 20110901
  Transmission Date: 20111222
  Serious: Yes (Other)
  Sender: FDA-Public Use
  Company Number: DE-PFIZER INC-2011204018

PATIENT
  Sex: Male

DRUGS (1)
  1. VARENICLINE TARTRATE [Suspect]
     Indication: SMOKING CESSATION THERAPY
     Dosage: UNK
     Dates: start: 20080301

REACTIONS (3)
  - RENAL AND PANCREAS TRANSPLANT [None]
  - DEPENDENCE ON ENABLING MACHINE OR DEVICE [None]
  - BLOOD CREATININE INCREASED [None]
